FAERS Safety Report 21665913 (Version 6)
Quarter: 2024Q4

REPORT INFORMATION
  Report Type: Report from Study
  Country: BR (occurrence: BR)
  Receive Date: 20221201
  Receipt Date: 20241226
  Transmission Date: 20250114
  Serious: Yes (Hospitalization, Other)
  Sender: BIOGEN
  Company Number: BR-BIOGEN-2019BI00783045

PATIENT
  Age: 50 Year
  Sex: Female
  Weight: 67 kg

DRUGS (18)
  1. TYSABRI [Suspect]
     Active Substance: NATALIZUMAB
     Indication: Multiple sclerosis
     Route: 050
     Dates: start: 20140820, end: 20200817
  2. TYSABRI [Suspect]
     Active Substance: NATALIZUMAB
     Route: 050
     Dates: start: 2012
  3. TYSABRI [Suspect]
     Active Substance: NATALIZUMAB
     Route: 050
     Dates: start: 201408
  4. TYSABRI [Suspect]
     Active Substance: NATALIZUMAB
     Route: 050
     Dates: start: 201208
  5. TYSABRI [Suspect]
     Active Substance: NATALIZUMAB
     Route: 050
     Dates: start: 20140820
  6. TYSABRI [Suspect]
     Active Substance: NATALIZUMAB
     Route: 050
     Dates: start: 201408
  7. RANITIDINE HYDROCHLORIDE [Concomitant]
     Active Substance: RANITIDINE HYDROCHLORIDE
     Indication: Product used for unknown indication
     Route: 050
  8. LOSARTAN [Concomitant]
     Active Substance: LOSARTAN
     Indication: Hypertension
     Dosage: 2 TABLETS PER DAY
     Route: 050
  9. LOSARTAN [Concomitant]
     Active Substance: LOSARTAN
     Route: 050
     Dates: start: 2012
  10. ATENOLOL [Concomitant]
     Active Substance: ATENOLOL
     Indication: Hypertension
     Dosage: 2 TABLETS PER DAY
     Route: 050
  11. ATENOLOL [Concomitant]
     Active Substance: ATENOLOL
     Route: 050
     Dates: start: 2012
  12. HYDROCHLOROTHIAZIDE [Concomitant]
     Active Substance: HYDROCHLOROTHIAZIDE
     Indication: Diuretic therapy
     Route: 050
     Dates: start: 2012
  13. RIVOTRIL [Concomitant]
     Active Substance: CLONAZEPAM
     Indication: Sleep disorder
     Route: 050
  14. VITAMIN D [Concomitant]
     Active Substance: VITAMIN D NOS
     Indication: Product used for unknown indication
     Route: 050
  15. VITAMIN D [Concomitant]
     Active Substance: VITAMIN D NOS
     Route: 050
  16. VITAMIN E [Concomitant]
     Active Substance: .ALPHA.-TOCOPHEROL
     Indication: Product used for unknown indication
     Route: 050
  17. AMITRIPTYLINE [Concomitant]
     Active Substance: AMITRIPTYLINE
     Indication: Product used for unknown indication
     Route: 050
  18. ORGANONEURO CEREBRAL [Concomitant]
     Indication: Product used for unknown indication
     Route: 050

REACTIONS (47)
  - Cerebral infarction [Unknown]
  - Tremor [Not Recovered/Not Resolved]
  - Foot deformity [Not Recovered/Not Resolved]
  - COVID-19 [Recovered/Resolved]
  - Cerebral ischaemia [Unknown]
  - Loss of control of legs [Not Recovered/Not Resolved]
  - Induration [Not Recovered/Not Resolved]
  - Cough [Not Recovered/Not Resolved]
  - Bipolar disorder [Not Recovered/Not Resolved]
  - Pain in extremity [Unknown]
  - General symptom [Unknown]
  - Feeling hot [Unknown]
  - Sensory disturbance [Not Recovered/Not Resolved]
  - Sensory loss [Not Recovered/Not Resolved]
  - Pain [Not Recovered/Not Resolved]
  - Vision blurred [Recovered/Resolved]
  - Visual impairment [Recovered/Resolved]
  - Hypoaesthesia [Not Recovered/Not Resolved]
  - Paraesthesia [Not Recovered/Not Resolved]
  - Vein disorder [Unknown]
  - Nausea [Unknown]
  - Pain [Unknown]
  - Fatigue [Recovered/Resolved]
  - Headache [Recovered/Resolved]
  - Pyrexia [Not Recovered/Not Resolved]
  - Decreased appetite [Not Recovered/Not Resolved]
  - Anosmia [Not Recovered/Not Resolved]
  - Thirst decreased [Not Recovered/Not Resolved]
  - Cyanosis [Unknown]
  - Fine motor skill dysfunction [Unknown]
  - Blood pressure increased [Recovered/Resolved]
  - Peripheral swelling [Recovered/Resolved]
  - Eye swelling [Recovered/Resolved]
  - Multiple sclerosis relapse [Not Recovered/Not Resolved]
  - Anxiety [Not Recovered/Not Resolved]
  - Abdominal pain [Not Recovered/Not Resolved]
  - Memory impairment [Not Recovered/Not Resolved]
  - Overweight [Unknown]
  - Choking [Recovered/Resolved]
  - Skin warm [Recovered/Resolved]
  - Diarrhoea [Not Recovered/Not Resolved]
  - Urinary incontinence [Not Recovered/Not Resolved]
  - Fluid retention [Recovered/Resolved]
  - Hemihypoaesthesia [Recovered/Resolved with Sequelae]
  - Dysentery [Not Recovered/Not Resolved]
  - Chikungunya virus infection [Recovered/Resolved with Sequelae]
  - Product dose omission issue [Recovered/Resolved]

NARRATIVE: CASE EVENT DATE: 20140801
